FAERS Safety Report 23110745 (Version 1)
Quarter: 2023Q4

REPORT INFORMATION
  Report Type: Spontaneous
  Country: RU (occurrence: None)
  Receive Date: 20231026
  Receipt Date: 20231026
  Transmission Date: 20240109
  Serious: Yes (Other)
  Sender: FDA-Public Use
  Company Number: RU-ROCHE-3444537

PATIENT
  Age: 70 Year
  Sex: Male

DRUGS (5)
  1. ATEZOLIZUMAB [Suspect]
     Active Substance: ATEZOLIZUMAB
     Indication: Non-small cell lung cancer
     Route: 065
     Dates: start: 202012
  2. BEVACIZUMAB [Suspect]
     Active Substance: BEVACIZUMAB
     Indication: Non-small cell lung cancer
     Route: 065
     Dates: start: 202012
  3. PACLITAXEL [Suspect]
     Active Substance: PACLITAXEL
     Indication: Non-small cell lung cancer
     Route: 065
     Dates: start: 202012
  4. CARBOPLATIN [Suspect]
     Active Substance: CARBOPLATIN
     Indication: Non-small cell lung cancer
     Dosage: AUC 6
     Route: 065
     Dates: start: 202012
  5. OSIMERTINIB [Concomitant]
     Active Substance: OSIMERTINIB
     Indication: Diarrhoea
     Dosage: PER DAY
     Route: 048
     Dates: start: 201909, end: 202012

REACTIONS (4)
  - Immune-mediated hypothyroidism [Unknown]
  - Pruritus [Unknown]
  - Blood pressure increased [Unknown]
  - Pleural effusion [Unknown]
